FAERS Safety Report 15399997 (Version 3)
Quarter: 2019Q1

REPORT INFORMATION
  Report Type: Spontaneous
  Country: US (occurrence: US)
  Receive Date: 20180919
  Receipt Date: 20190328
  Transmission Date: 20190417
  Serious: Yes (Life-Threatening, Hospitalization, Other)
  Sender: FDA-Public Use
  Company Number: US-SUN PHARMACEUTICAL INDUSTRIES LTD-2018US-184708

PATIENT
  Age: 17 Year
  Sex: Male

DRUGS (1)
  1. METFORMIN [Suspect]
     Active Substance: METFORMIN HYDROCHLORIDE
     Indication: PRODUCT USED FOR UNKNOWN INDICATION
     Dosage: 20 TABLETS OF METFORMIN (TOTAL DOSE OF 10,000 MG; 0.173 G/KG BODY WEIGHT
     Route: 048

REACTIONS (12)
  - Abdominal pain [Unknown]
  - Metabolic acidosis [Recovered/Resolved]
  - Suicidal ideation [Unknown]
  - Hypoglycaemia [Recovered/Resolved]
  - Toxicity to various agents [Recovering/Resolving]
  - Lactic acidosis [Recovered/Resolved]
  - Intentional overdose [Unknown]
  - Acute myocardial infarction [Recovered/Resolved]
  - Vomiting [Unknown]
  - Somnolence [Unknown]
  - Acute kidney injury [Recovered/Resolved]
  - Electrocardiogram ST segment elevation [Recovered/Resolved]
